FAERS Safety Report 6785764-4 (Version None)
Quarter: 2010Q2

REPORT INFORMATION
  Report Type: 
  Country: None (occurrence: None)
  Receive Date: 20100622
  Receipt Date: 20100622
  Transmission Date: 20101027
  Serious: Yes (Hospitalization)
  Sender: FDA-Public Use
  Company Number: None

PATIENT
  Age: 41 Year
  Sex: Female
  Weight: 63.6 kg

DRUGS (14)
  1. MICROGESTIN 1.5/30 [Suspect]
     Indication: CONTRACEPTION
     Dosage: 20 MG DAILY PO CHRONIC
     Route: 048
  2. PROZAC [Concomitant]
  3. MACRODANTIN [Concomitant]
  4. OXYBUTYNIN CHLORIDE [Concomitant]
  5. MIRALAX [Concomitant]
  6. POTASSIUM CHLORIDE [Concomitant]
  7. VIT D [Concomitant]
  8. CLONAZEPAM [Concomitant]
  9. CLORAZEPATE DIPOTASSIUM [Concomitant]
  10. TOPAMAX [Concomitant]
  11. DESYREL [Concomitant]
  12. DULCOLAX [Concomitant]
  13. VICODIN [Concomitant]
  14. NAPROSYN [Concomitant]

REACTIONS (3)
  - DEEP VEIN THROMBOSIS [None]
  - MOBILITY DECREASED [None]
  - PULMONARY EMBOLISM [None]
